FAERS Safety Report 16578037 (Version 3)
Quarter: 2019Q3

REPORT INFORMATION
  Report Type: Spontaneous
  Country: US (occurrence: US)
  Receive Date: 20190716
  Receipt Date: 20190912
  Transmission Date: 20191004
  Serious: No
  Sender: FDA-Public Use
  Company Number: US-PFIZER INC-2019295800

PATIENT
  Age: 55 Year
  Sex: Male

DRUGS (1)
  1. ADVIL LIQUI-GELS [Suspect]
     Active Substance: IBUPROFEN
     Indication: BACK PAIN
     Dosage: UNK
     Dates: start: 2019, end: 20190707

REACTIONS (1)
  - Drug ineffective [Unknown]

NARRATIVE: CASE EVENT DATE: 2019
